FAERS Safety Report 21872492 (Version 1)
Quarter: 2023Q1

REPORT INFORMATION
  Report Type: Spontaneous
  Country: US (occurrence: None)
  Receive Date: 20230114
  Receipt Date: 20230114
  Transmission Date: 20230417
  Serious: Yes (Hospitalization)
  Sender: FDA-Public Use
  Company Number: None

PATIENT
  Sex: Male
  Weight: 48 kg

DRUGS (2)
  1. FLUOROURACIL [Suspect]
     Active Substance: FLUOROURACIL
     Dates: end: 20221213
  2. CISPLATIN [Suspect]
     Active Substance: CISPLATIN

REACTIONS (2)
  - SARS-CoV-2 test positive [None]
  - Anaemia [None]

NARRATIVE: CASE EVENT DATE: 20230105
